FAERS Safety Report 16070592 (Version 1)
Quarter: 2019Q1

REPORT INFORMATION
  Report Type: Spontaneous
  Country: US (occurrence: US)
  Receive Date: 20190314
  Receipt Date: 20190314
  Transmission Date: 20190418
  Serious: Yes (Death, Other)
  Sender: FDA-Public Use
  Company Number: US-DRREDDYS-USA/USA/19/0108541

PATIENT
  Age: 8 Year
  Sex: Female
  Weight: 39 kg

DRUGS (1)
  1. BIVALIRUDIN INJECTION [Suspect]
     Active Substance: BIVALIRUDIN
     Indication: ANTICOAGULANT THERAPY
     Route: 065

REACTIONS (2)
  - Epistaxis [Unknown]
  - Gastrointestinal haemorrhage [Fatal]
